FAERS Safety Report 5835099-9 (Version None)
Quarter: 2008Q3

REPORT INFORMATION
  Report Type: 
  Country: None (occurrence: None)
  Receive Date: 20080805
  Receipt Date: 20080805
  Transmission Date: 20090109
  Serious: Yes (Other)
  Sender: FDA-Public Use
  Company Number: None

PATIENT
  Age: 56 Year
  Sex: Female
  Weight: 73 kg

DRUGS (1)
  1. VANCOMYCIN [Suspect]
     Indication: PREOPERATIVE CARE
     Dosage: 1 GRAM ONE DOSE PREOP IV DRIP
     Route: 041
     Dates: start: 20080804, end: 20080804

REACTIONS (1)
  - RED MAN SYNDROME [None]
